FAERS Safety Report 11274433 (Version 2)
Quarter: 2015Q3

REPORT INFORMATION
  Report Type: Report from Study
  Country: US (occurrence: US)
  Receive Date: 20150715
  Receipt Date: 20150810
  Transmission Date: 20151125
  Serious: Yes (Other)
  Sender: FDA-Public Use
  Company Number: US-ABBVIE-15P-163-1424231-00

PATIENT
  Age: 59 Year
  Sex: Male
  Weight: 97.16 kg

DRUGS (6)
  1. VIEKIRA PAK [Suspect]
     Active Substance: DASABUVIR\OMBITASVIR\PARITAPREVIR\RITONAVIR
     Indication: CHRONIC HEPATITIS C
     Dosage: 3 TABLETS IN AM, + 1 TABLET IN PM.
     Route: 048
     Dates: start: 20150317, end: 20150713
  2. METFORMIN [Concomitant]
     Active Substance: METFORMIN HYDROCHLORIDE
     Indication: DIABETES MELLITUS
  3. XIFAXAN [Concomitant]
     Active Substance: RIFAXIMIN
     Indication: PRODUCT USED FOR UNKNOWN INDICATION
  4. MODERIBA [Suspect]
     Active Substance: RIBAVIRIN
     Indication: CHRONIC HEPATITIS C
     Dosage: 3 TABS BID, AND NOW 600 MG
     Route: 048
     Dates: start: 20150317, end: 20150713
  5. LACTULOSE. [Suspect]
     Active Substance: LACTULOSE
     Indication: AMMONIA INCREASED
     Dosage: UNKNOWN DOSAGE
     Route: 065
     Dates: start: 20150606, end: 201507
  6. LACTULOSE. [Suspect]
     Active Substance: LACTULOSE
     Dosage: DECREASED DOSE
     Route: 065
     Dates: start: 201507

REACTIONS (17)
  - Diarrhoea [Not Recovered/Not Resolved]
  - Weight increased [Not Recovered/Not Resolved]
  - Increased appetite [Not Recovered/Not Resolved]
  - Erythema [Not Recovered/Not Resolved]
  - Skin haemorrhage [Unknown]
  - Ammonia increased [Not Recovered/Not Resolved]
  - Blindness [Not Recovered/Not Resolved]
  - Dehydration [Not Recovered/Not Resolved]
  - Skin ulcer [Unknown]
  - Amnesia [Not Recovered/Not Resolved]
  - Headache [Unknown]
  - Incorrect dose administered [Unknown]
  - Asthenia [Not Recovered/Not Resolved]
  - Epistaxis [Unknown]
  - Vision blurred [Unknown]
  - Tinnitus [Not Recovered/Not Resolved]
  - Rash [Not Recovered/Not Resolved]

NARRATIVE: CASE EVENT DATE: 201504
